FAERS Safety Report 10553499 (Version 1)
Quarter: 2014Q4

REPORT INFORMATION
  Report Type: Spontaneous
  Country: SA (occurrence: None)
  Receive Date: 20141028
  Receipt Date: 20141028
  Transmission Date: 20150529
  Serious: Yes (Other)
  Sender: FDA-Public Use
  Company Number: 2014-PEL-000301

PATIENT
  Age: 13 Year
  Sex: Male

DRUGS (4)
  1. MIDAZOLAM [Concomitant]
     Active Substance: MIDAZOLAM\MIDAZOLAM HYDROCHLORIDE
  2. SEVOFLURANE (SEVOFLURANE) (SEVOFLURANE) [Suspect]
     Active Substance: SEVOFLURANE
     Indication: ANAESTHESIA
  3. FENTANYL (FENTANYL) [Concomitant]
     Active Substance: FENTANYL
  4. PROPOFOL (PROPOFOL) [Concomitant]
     Active Substance: PROPOFOL

REACTIONS (5)
  - Delusion [None]
  - Anaesthetic complication neurological [None]
  - Agitation [None]
  - Hallucination [None]
  - Aggression [None]
